FAERS Safety Report 5648375-X (Version None)
Quarter: 2008Q1

REPORT INFORMATION
  Report Type: 
  Country: None (occurrence: None)
  Receive Date: 20080131
  Receipt Date: 20071017
  Transmission Date: 20080703
  Serious: No
  Sender: FDA-Public Use
  Company Number: 2006PV011543

PATIENT
  Age: 83 Year
  Sex: Male

DRUGS (9)
  1. EXENATIDE(EXENATIDE) PEN,DISPOSABLE [Suspect]
     Indication: INSULIN-REQUIRING TYPE 2 DIABETES MELLITUS
     Dosage: 5 UG, 2/D, SUBCUTANEOUS ; 10 UG, 2/D, SUBCUTANEOUS
     Route: 058
     Dates: start: 20051201
  2. EXENATIDE(EXENATIDE) PEN,DISPOSABLE [Suspect]
     Indication: INSULIN-REQUIRING TYPE 2 DIABETES MELLITUS
     Dosage: 5 UG, 2/D, SUBCUTANEOUS ; 10 UG, 2/D, SUBCUTANEOUS
     Route: 058
     Dates: start: 20060315
  3. INSULIN HUMALOG MIX (ISOPHANE INSULIN, INSULIN LISPRO) [Concomitant]
  4. AVANDIA [Concomitant]
  5. ARINES [Concomitant]
  6. ARANESP /USA/ [Concomitant]
  7. INSULIN (INSULIN) [Concomitant]
  8. HUMULIN /00646001/ (INSULIN HUMAN) [Concomitant]
  9. GLUCOTROL [Concomitant]

REACTIONS (6)
  - BLOOD GLUCOSE DECREASED [None]
  - BLOOD GLUCOSE FLUCTUATION [None]
  - DECREASED APPETITE [None]
  - HAEMOGLOBIN DECREASED [None]
  - HYPERHIDROSIS [None]
  - TREMOR [None]
